FAERS Safety Report 20570709 (Version 3)
Quarter: 2022Q2

REPORT INFORMATION
  Report Type: Spontaneous
  Country: US (occurrence: None)
  Receive Date: 20220309
  Receipt Date: 20220506
  Transmission Date: 20220721
  Serious: No
  Sender: FDA-Public Use
  Company Number: 2022A078018

PATIENT
  Age: 23308 Day
  Sex: Male
  Weight: 108 kg

DRUGS (1)
  1. BYDUREON BCISE [Suspect]
     Active Substance: EXENATIDE
     Indication: Diabetes mellitus
     Route: 058

REACTIONS (6)
  - Blood glucose fluctuation [Unknown]
  - Wrong technique in device usage process [Unknown]
  - Needle issue [Unknown]
  - Drug dose omission by device [Recovered/Resolved]
  - Device delivery system issue [Unknown]
  - Device leakage [Unknown]

NARRATIVE: CASE EVENT DATE: 20220129
